FAERS Safety Report 4827105-5 (Version None)
Quarter: 2005Q4

REPORT INFORMATION
  Report Type: 
  Country: None (occurrence: None)
  Receive Date: 20051114
  Receipt Date: 20051102
  Transmission Date: 20060501
  Serious: Yes (Hospitalization)
  Sender: FDA-Public Use
  Company Number: JP-GLAXOSMITHKLINE-B0399129A

PATIENT
  Age: 61 Year
  Sex: Female

DRUGS (2)
  1. TOPOTECAN [Suspect]
     Indication: OVARIAN CANCER
     Dosage: 1.51MG PER DAY
     Route: 042
     Dates: start: 20051003, end: 20051007
  2. HYDROCHLOROTHIAZIDE [Concomitant]

REACTIONS (3)
  - ABDOMINAL DISTENSION [None]
  - MALAISE [None]
  - PYREXIA [None]
